FAERS Safety Report 7349047-6 (Version None)
Quarter: 2011Q1

REPORT INFORMATION
  Report Type: 
  Country: None (occurrence: None)
  Receive Date: 20110314
  Receipt Date: 20110303
  Transmission Date: 20110831
  Serious: Yes (Hospitalization)
  Sender: FDA-Public Use
  Company Number: JP-AMGEN-JPNSP2011012598

PATIENT
  Age: 65 Year

DRUGS (6)
  1. METHOTREXATE [Suspect]
     Dosage: 4 MG, WEEKLY
     Route: 048
     Dates: start: 20110224, end: 20110224
  2. LOXONIN                            /00890701/ [Concomitant]
     Dosage: UNK
  3. MUCOSTA [Concomitant]
     Dosage: UNK
  4. METHOTREXATE [Suspect]
     Indication: RHEUMATOID ARTHRITIS
     Dosage: 4 MG, WEEKLY
     Route: 048
     Dates: end: 20110120
  5. ENBREL [Suspect]
     Indication: RHEUMATOID ARTHRITIS
     Dosage: 25 MG, WEEKLY
     Route: 058
     Dates: end: 20110120
  6. ENBREL [Suspect]
     Dosage: 25 MG, WEEKLY
     Route: 058
     Dates: start: 20110226, end: 20110226

REACTIONS (2)
  - BONE MARROW FAILURE [None]
  - ORTHOPEDIC PROCEDURE [None]
